FAERS Safety Report 25951585 (Version 1)
Quarter: 2025Q4

REPORT INFORMATION
  Report Type: Spontaneous
  Country: BR (occurrence: BR)
  Receive Date: 20251023
  Receipt Date: 20251023
  Transmission Date: 20260118
  Serious: Yes (Other)
  Sender: Onesource Specialty Pharma
  Company Number: BR-STRIDES ARCOLAB LIMITED-2025OS001014

PATIENT
  Age: 26 Year
  Sex: Male

DRUGS (8)
  1. MYCOPHENOLATE MOFETIL [Suspect]
     Active Substance: MYCOPHENOLATE MOFETIL
     Indication: Type 2 lepra reaction
     Dosage: 1.5 GRAM, QD
     Route: 042
  2. PREDNISONE [Suspect]
     Active Substance: PREDNISONE
     Indication: Type 2 lepra reaction
     Dosage: UNK
     Route: 048
  3. THALIDOMIDE [Suspect]
     Active Substance: THALIDOMIDE
     Indication: Type 2 lepra reaction
     Dosage: UNK
     Route: 065
  4. PREDNISOLONE [Suspect]
     Active Substance: PREDNISOLONE
     Indication: Type 2 lepra reaction
     Dosage: UNK
     Route: 048
  5. BETAMETHASONE [Suspect]
     Active Substance: BETAMETHASONE
     Indication: Type 2 lepra reaction
     Dosage: UNK
     Route: 048
  6. RIFAMPIN [Concomitant]
     Active Substance: RIFAMPIN
     Indication: Borderline leprosy
     Dosage: UNK
     Route: 065
  7. DAPSONE [Concomitant]
     Active Substance: DAPSONE
     Indication: Borderline leprosy
     Dosage: UNK
     Route: 065
  8. CLOFAZIMINE [Concomitant]
     Active Substance: CLOFAZIMINE
     Indication: Borderline leprosy
     Dosage: UNK
     Route: 065

REACTIONS (5)
  - Pulmonary embolism [Unknown]
  - Type 2 diabetes mellitus [Unknown]
  - Deep vein thrombosis [Unknown]
  - Obesity [Unknown]
  - Off label use [Unknown]
